FAERS Safety Report 8543741-7 (Version None)
Quarter: 2012Q3

REPORT INFORMATION
  Report Type: 
  Country: None (occurrence: None)
  Receive Date: 20120727
  Receipt Date: 20120720
  Transmission Date: 20120928
  Serious: Yes (Other)
  Sender: FDA-Public Use
  Company Number: HU-PFIZER INC-2012178237

PATIENT
  Age: 70 Year
  Sex: Female
  Weight: 81 kg

DRUGS (8)
  1. BETAHISTIN [Concomitant]
     Dosage: UNK
     Dates: start: 20090101
  2. CONDROSULF [Concomitant]
     Dosage: UNK
     Dates: start: 20100101
  3. LYRICA [Suspect]
     Indication: NEURALGIA
     Dosage: UNK
     Dates: start: 20110101
  4. LYRICA [Suspect]
     Dosage: 150 MG, 2X/DAY
  5. DIAPREL [Concomitant]
     Dosage: UNK
     Dates: start: 19960101
  6. CAVINTON [Concomitant]
     Dosage: UNK
     Dates: start: 19920101
  7. COVERCARD [Concomitant]
     Dosage: UNK
     Dates: start: 20090101
  8. TALLITON [Concomitant]
     Dosage: UNK
     Dates: start: 20090101

REACTIONS (4)
  - SKIN HAEMORRHAGE [None]
  - PAIN IN EXTREMITY [None]
  - GAIT DISTURBANCE [None]
  - DRY SKIN [None]
